FAERS Safety Report 20697860 (Version 1)
Quarter: 2022Q2

REPORT INFORMATION
  Report Type: Spontaneous
  Country: US (occurrence: US)
  Receive Date: 20220412
  Receipt Date: 20220412
  Transmission Date: 20220721
  Serious: Yes (Other)
  Sender: FDA-Public Use
  Company Number: US-SUN PHARMACEUTICAL INDUSTRIES LTD-2022R1-332232

PATIENT
  Age: 23 Year
  Sex: Female

DRUGS (1)
  1. FERROUS SULFATE [Suspect]
     Active Substance: FERROUS SULFATE
     Indication: Anaemia
     Dosage: UNK
     Route: 065

REACTIONS (4)
  - Exposure during pregnancy [Unknown]
  - Neovascularisation [Unknown]
  - Amniotic cavity infection [Unknown]
  - Live birth [Unknown]
